FAERS Safety Report 12790425 (Version 1)
Quarter: 2016Q3

REPORT INFORMATION
  Report Type: Spontaneous
  Country: IT (occurrence: IT)
  Receive Date: 20160929
  Receipt Date: 20160929
  Transmission Date: 20161109
  Serious: Yes (Other)
  Sender: FDA-Public Use
  Company Number: IT-ROCHE-1835557

PATIENT
  Age: 48 Year
  Sex: Male

DRUGS (2)
  1. VEMURAFENIB [Suspect]
     Active Substance: VEMURAFENIB
     Indication: COLORECTAL CANCER
     Route: 065
     Dates: start: 20150506, end: 20151007
  2. VECTIBIX [Suspect]
     Active Substance: PANITUMUMAB
     Indication: COLORECTAL CANCER
     Route: 065
     Dates: start: 20150506, end: 20151007

REACTIONS (6)
  - Metastases to pelvis [Unknown]
  - Metastases to lymph nodes [Unknown]
  - Metastases to penis [Unknown]
  - Metastases to liver [Unknown]
  - Drug resistance [Unknown]
  - Off label use [Unknown]

NARRATIVE: CASE EVENT DATE: 20160506
